FAERS Safety Report 18868251 (Version 7)
Quarter: 2025Q3

REPORT INFORMATION
  Report Type: Report from Study
  Country: EU (occurrence: EU)
  Receive Date: 20210209
  Receipt Date: 20250723
  Transmission Date: 20251021
  Serious: Yes (Life-Threatening, Hospitalization, Other)
  Sender: NOVARTIS
  Company Number: NVSC2019FI018078

PATIENT
  Age: 66 Year
  Sex: Male

DRUGS (11)
  1. TABRECTA [Suspect]
     Active Substance: CAPMATINIB
     Indication: Metastases to lung
     Dosage: 400 MG, BID
     Route: 048
     Dates: start: 20190708, end: 2019
  2. TABRECTA [Suspect]
     Active Substance: CAPMATINIB
     Indication: Lung adenocarcinoma
     Dosage: 100 MG, BID
     Route: 048
     Dates: start: 20191015, end: 201911
  3. TABRECTA [Suspect]
     Active Substance: CAPMATINIB
     Dosage: 200 MG, QD
     Route: 048
     Dates: start: 201911
  4. TABRECTA [Suspect]
     Active Substance: CAPMATINIB
     Dosage: 200 MG, BID
     Route: 048
     Dates: start: 2019, end: 202101
  5. TABRECTA [Suspect]
     Active Substance: CAPMATINIB
     Dosage: 400 MG, BID
     Route: 048
     Dates: start: 2021
  6. DEXAMETHASONE [Concomitant]
     Active Substance: DEXAMETHASONE
     Indication: Lung neoplasm malignant
     Dosage: 1.5 MG TO 3 MG, QD
     Route: 065
  7. DEXAMETHASONE [Concomitant]
     Active Substance: DEXAMETHASONE
     Dosage: 0.5 MG TO 1.5 MG (VARIABLE DOSES)
     Route: 065
  8. TINZAPARIN [Concomitant]
     Active Substance: TINZAPARIN
     Indication: Lung neoplasm malignant
     Route: 058
  9. TINZAPARIN [Concomitant]
     Active Substance: TINZAPARIN
     Indication: Pulmonary embolism
  10. IBUPROFEN [Concomitant]
     Active Substance: IBUPROFEN
     Indication: Pain
     Route: 048
  11. OXYCONTIN [Concomitant]
     Active Substance: OXYCODONE HYDROCHLORIDE
     Indication: Pain
     Route: 048

REACTIONS (8)
  - Pleural effusion [Recovering/Resolving]
  - Ascites [Recovering/Resolving]
  - Adverse event [Unknown]
  - Swelling [Unknown]
  - Oedema [Unknown]
  - Blood albumin decreased [Unknown]
  - Alanine aminotransferase increased [Not Recovered/Not Resolved]
  - Peripheral swelling [Recovering/Resolving]

NARRATIVE: CASE EVENT DATE: 20190913
